FAERS Safety Report 6080576-1 (Version None)
Quarter: 2009Q1

REPORT INFORMATION
  Report Type: 
  Country: None (occurrence: None)
  Receive Date: 20090217
  Receipt Date: 20090211
  Transmission Date: 20090719
  Serious: Yes (Other)
  Sender: FDA-Public Use
  Company Number: B0559499A

PATIENT
  Age: 24 Year
  Sex: Female

DRUGS (1)
  1. CEFUROXIME [Suspect]
     Indication: PELVIC INFECTION
     Dosage: 1G PER DAY
     Route: 048
     Dates: start: 20090126, end: 20090202

REACTIONS (4)
  - ANOREXIA [None]
  - CONSTIPATION [None]
  - DIZZINESS [None]
  - NAUSEA [None]
